FAERS Safety Report 5896783-4 (Version None)
Quarter: 2008Q3

REPORT INFORMATION
  Report Type: 
  Country: None (occurrence: None)
  Receive Date: 20080924
  Receipt Date: 20071101
  Transmission Date: 20090109
  Serious: Yes (Hospitalization)
  Sender: FDA-Public Use
  Company Number: US-ASTRAZENECA-2007UW25323

PATIENT
  Age: 24 Year
  Sex: Male
  Weight: 88.5 kg

DRUGS (3)
  1. SEROQUEL [Suspect]
     Route: 048
  2. RISPERDAL CONSTA [Suspect]
     Indication: SCHIZOPHRENIA
     Dosage: ONE IN TWO WEEKS
     Route: 030
     Dates: start: 20070810
  3. RISPERDAL CONSTA [Suspect]
     Indication: ALCOHOL USE
     Dosage: ONE IN TWO WEEKS
     Route: 030
     Dates: start: 20070810

REACTIONS (1)
  - AGGRESSION [None]
